FAERS Safety Report 7987803-1 (Version None)
Quarter: 2011Q4

REPORT INFORMATION
  Report Type: 
  Country: None (occurrence: None)
  Receive Date: 20111216
  Receipt Date: 20101206
  Transmission Date: 20120403
  Serious: No
  Sender: FDA-Public Use
  Company Number: US-BRISTOL-MYERS SQUIBB COMPANY-15376049

PATIENT
  Age: 48 Year
  Sex: Female
  Weight: 82 kg

DRUGS (15)
  1. PREVACID [Concomitant]
  2. CYMBALTA [Concomitant]
  3. SINGULAIR [Concomitant]
  4. FLOVENT [Concomitant]
     Indication: ASTHMA
     Route: 055
  5. ATROVENT [Concomitant]
     Indication: ASTHMA
     Route: 055
  6. ARTANE [Concomitant]
  7. ABILIFY [Suspect]
     Indication: SCHIZOPHRENIA
     Dosage: STARTED:8YRS AGO
  8. TOPAMAX [Concomitant]
  9. PITUITARY HORMONE, ANTERIOR [Concomitant]
  10. TERBUTALINE [Concomitant]
  11. ALBUTEROL [Concomitant]
     Indication: ASTHMA
     Route: 055
  12. KLONOPIN [Concomitant]
  13. PROLIXIN [Concomitant]
  14. SYNTHROID [Concomitant]
  15. LITHIUM CARBONATE [Concomitant]

REACTIONS (1)
  - DRUG INEFFECTIVE [None]
